FAERS Safety Report 16624815 (Version 2)
Quarter: 2019Q3

REPORT INFORMATION
  Report Type: Spontaneous
  Country: FR (occurrence: FR)
  Receive Date: 20190724
  Receipt Date: 20190807
  Transmission Date: 20191004
  Serious: Yes (Other)
  Sender: FDA-Public Use
  Company Number: FR-PFIZER INC-2019308084

PATIENT
  Age: 52 Year
  Sex: Female

DRUGS (6)
  1. EPIRUBICIN HCL [Suspect]
     Active Substance: EPIRUBICIN HYDROCHLORIDE
     Indication: BREAST CANCER FEMALE
     Dosage: UNK, CYCLIC (3 CYCLES)
     Route: 042
     Dates: start: 2016
  2. ENANTONE [LEUPRORELIN] [Suspect]
     Active Substance: LEUPROLIDE ACETATE
     Indication: BREAST CANCER FEMALE
     Dosage: 1 DF, EVERY 4 WEEKS
     Route: 030
     Dates: start: 2017
  3. ZOMETA [Suspect]
     Active Substance: ZOLEDRONIC ACID
     Indication: OSTEOPOROSIS
     Dosage: 1 DF, EVERY 6 MONTHS
     Route: 042
     Dates: start: 2017
  4. EXEMESTANE. [Suspect]
     Active Substance: EXEMESTANE
     Indication: BREAST CANCER FEMALE
     Dosage: 25 MG, UNK
     Route: 048
     Dates: start: 2017
  5. CYCLOPHOSPHAMIDE. [Suspect]
     Active Substance: CYCLOPHOSPHAMIDE
     Indication: BREAST CANCER FEMALE
     Dosage: UNK, CYCLIC (3 CYCLES)
     Route: 042
     Dates: start: 2019
  6. PACLITAXEL. [Suspect]
     Active Substance: PACLITAXEL
     Indication: BREAST CANCER FEMALE
     Dosage: UNK, CYCLIC (9 CYCLES)
     Route: 042
     Dates: start: 2016

REACTIONS (3)
  - Cognitive disorder [Not Recovered/Not Resolved]
  - Memory impairment [Not Recovered/Not Resolved]
  - Language disorder [Not Recovered/Not Resolved]

NARRATIVE: CASE EVENT DATE: 201806
